FAERS Safety Report 8782667 (Version 1)
Quarter: 2012Q4

REPORT INFORMATION
  Report Type: Report from Study
  Country: US (occurrence: US)
  Receive Date: 20120913
  Receipt Date: 20120913
  Transmission Date: 20130627
  Serious: No
  Sender: FDA-Public Use
  Company Number: US-VERTEX PHARMACEUTICAL INC.-AE-2012-010152

PATIENT
  Age: 61 Year
  Sex: Female
  Weight: 69.91 kg

DRUGS (7)
  1. INCIVEK [Suspect]
     Indication: HEPATITIS C
     Route: 048
  2. PEGASYS [Concomitant]
     Indication: HEPATITIS C
  3. RIBAVIRIN [Concomitant]
     Indication: HEPATITIS C
  4. RIBAVIRIN [Concomitant]
     Dates: start: 201204
  5. MULTIVITAMIN [Concomitant]
  6. FISH OIL [Concomitant]
  7. VITAMIN B-12 [Concomitant]

REACTIONS (2)
  - Alopecia [Unknown]
  - Red blood cell count decreased [Unknown]
